FAERS Safety Report 7493245-8 (Version None)
Quarter: 2011Q2

REPORT INFORMATION
  Report Type: 
  Country: None (occurrence: None)
  Receive Date: 20110520
  Receipt Date: 20110512
  Transmission Date: 20111010
  Serious: Yes (Other)
  Sender: FDA-Public Use
  Company Number: US-JNJFOC-20110506556

PATIENT
  Age: 78 Year
  Sex: Female
  Weight: 61.24 kg

DRUGS (4)
  1. PEPCID AC [Suspect]
     Route: 048
  2. AVAPRO [Concomitant]
     Indication: HYPERTENSION
     Route: 048
     Dates: start: 20010101
  3. PEPCID AC [Suspect]
     Indication: DYSPEPSIA
     Route: 048
     Dates: start: 20101101
  4. ZOCOR [Concomitant]
     Indication: BLOOD CHOLESTEROL INCREASED
     Route: 048
     Dates: start: 20010101

REACTIONS (2)
  - BLOOD PRESSURE INCREASED [None]
  - INTENTIONAL DRUG MISUSE [None]
